FAERS Safety Report 11713953 (Version 1)
Quarter: 2015Q4

REPORT INFORMATION
  Report Type: Spontaneous
  Country: US (occurrence: US)
  Receive Date: 20151109
  Receipt Date: 20151109
  Transmission Date: 20160304
  Serious: No
  Sender: FDA-Public Use
  Company Number: US-B.I. PHARMACEUTICALS,INC./RIDGEFIELD-2015-BI-59810BP

PATIENT
  Sex: Male

DRUGS (3)
  1. FLOVENT [Concomitant]
     Active Substance: FLUTICASONE PROPIONATE
     Indication: DYSPNOEA
     Dosage: FORMULATION: INHALATION SOLUTION
     Route: 055
     Dates: start: 1995
  2. VITAMINE [Concomitant]
     Indication: SUPPLEMENTATION THERAPY
     Route: 048
  3. COMBIVENT [Suspect]
     Active Substance: ALBUTEROL SULFATE\IPRATROPIUM BROMIDE
     Indication: ASTHMA
     Dosage: DOSE PER APPLICATION: DOSE PER APPLICATION: 20 MCG / 100 MCG
     Route: 055
     Dates: start: 2011

REACTIONS (2)
  - Dyspnoea [Recovered/Resolved]
  - Off label use [Unknown]

NARRATIVE: CASE EVENT DATE: 2011
